FAERS Safety Report 6982348-X (Version None)
Quarter: 2010Q3

REPORT INFORMATION
  Report Type: 
  Country: None (occurrence: None)
  Receive Date: 20100909
  Receipt Date: 20100827
  Transmission Date: 20110219
  Serious: Yes (Hospitalization, Other)
  Sender: FDA-Public Use
  Company Number: 2010AP001801

PATIENT
  Age: 54 Year
  Sex: Female

DRUGS (6)
  1. LITHIUM CARBONATE CAP [Suspect]
     Indication: AGITATION
     Dosage: 300 MG; BID
  2. LITHIUM CARBONATE CAP [Suspect]
     Indication: BIPOLAR DISORDER
     Dosage: 300 MG; BID
  3. RISPERIDONE [Suspect]
     Indication: AGITATION
     Dosage: 4 MG
  4. HALOPERIDOL [Suspect]
     Indication: AGITATION
     Dosage: 45 MG; IM
     Route: 030
  5. BENZATROPINE [Concomitant]
  6. LORAZEPAM [Concomitant]

REACTIONS (22)
  - AGGRESSION [None]
  - AGITATION [None]
  - COGWHEEL RIGIDITY [None]
  - CONFUSIONAL STATE [None]
  - DELIRIUM [None]
  - DELUSION OF GRANDEUR [None]
  - DISORIENTATION [None]
  - DRUG DOSE OMISSION [None]
  - DRUG SCREEN POSITIVE [None]
  - DYSTONIA [None]
  - HEART RATE INCREASED [None]
  - HYPERHIDROSIS [None]
  - HYPERTONIA [None]
  - INCOHERENT [None]
  - MENTAL STATUS CHANGES [None]
  - MOANING [None]
  - NEUROLEPTIC MALIGNANT SYNDROME [None]
  - PERSECUTORY DELUSION [None]
  - PSYCHOTIC DISORDER [None]
  - RESPIRATORY RATE INCREASED [None]
  - SALIVARY HYPERSECRETION [None]
  - TACHYCARDIA [None]
